FAERS Safety Report 6519396-X (Version None)
Quarter: 2009Q4

REPORT INFORMATION
  Report Type: 
  Country: None (occurrence: None)
  Receive Date: 20091228
  Receipt Date: 20091221
  Transmission Date: 20100525
  Serious: Yes (Disabling)
  Sender: FDA-Public Use
  Company Number: LV-MERCK-0912USA02894

PATIENT
  Age: 59 Year
  Sex: Female
  Weight: 65 kg

DRUGS (2)
  1. FOSAMAX [Suspect]
     Indication: OSTEOPOROSIS
     Route: 048
     Dates: start: 20040101, end: 20090101
  2. IRFEN [Concomitant]
     Indication: PAIN
     Route: 065
     Dates: start: 20091001, end: 20091201

REACTIONS (9)
  - ANAEMIA [None]
  - ASTHENIA [None]
  - ATAXIA [None]
  - BLOOD IMMUNOGLOBULIN E INCREASED [None]
  - ERYTHROPENIA [None]
  - HYPOCALCAEMIA [None]
  - LEUKOPENIA [None]
  - NEUTROPENIA [None]
  - SOMNOLENCE [None]
